FAERS Safety Report 9920066 (Version 1)
Quarter: 2014Q1

REPORT INFORMATION
  Report Type: Spontaneous
  Country: US (occurrence: US)
  Receive Date: 20140224
  Receipt Date: 20140224
  Transmission Date: 20141002
  Serious: Yes (Hospitalization, Other)
  Sender: FDA-Public Use
  Company Number: US-TEVA-463782USA

PATIENT
  Age: 66 Year
  Sex: Male

DRUGS (7)
  1. VALACICLOVIR [Suspect]
     Indication: OPHTHALMIC HERPES ZOSTER
     Dosage: 1000MG DAILY (PRESCRIPTION WAS FOR 7 DAYS)
     Route: 048
  2. TRIFLURIDINE [Concomitant]
     Indication: OPHTHALMIC HERPES ZOSTER
     Route: 065
  3. SIMVASTATIN [Concomitant]
     Route: 065
  4. METOPROLOL [Concomitant]
     Route: 065
  5. SEVELAMER [Concomitant]
     Route: 065
  6. FUROSEMIDE [Concomitant]
     Route: 065
  7. GLIMEPIRIDE [Concomitant]
     Route: 065

REACTIONS (5)
  - Hallucination [Recovering/Resolving]
  - Insomnia [Recovering/Resolving]
  - Photosensitivity reaction [Recovering/Resolving]
  - Neurotoxicity [Recovering/Resolving]
  - Disturbance in attention [Recovering/Resolving]
